FAERS Safety Report 19890986 (Version 20)
Quarter: 2023Q4

REPORT INFORMATION
  Report Type: Spontaneous
  Country: GB (occurrence: GB)
  Receive Date: 20210928
  Receipt Date: 20231222
  Transmission Date: 20240110
  Serious: Yes (Life-Threatening, Hospitalization, Other)
  Sender: FDA-Public Use
  Company Number: GB-ACCORD-240197

PATIENT
  Age: 45 Year
  Sex: Male
  Weight: 98.7 kg

DRUGS (64)
  1. CARBOPLATIN [Suspect]
     Active Substance: CARBOPLATIN
     Indication: Diffuse large B-cell lymphoma stage II
     Dosage: 5 AUC, 750 MG 1Q3W
     Route: 042
     Dates: start: 20210901, end: 20210901
  2. CYTARABINE [Suspect]
     Active Substance: CYTARABINE
     Indication: Diffuse large B-cell lymphoma stage II
     Dosage: 1Q2H
     Route: 042
     Dates: start: 20210901, end: 20210902
  3. RITUXIMAB [Suspect]
     Active Substance: RITUXIMAB
     Indication: Diffuse large B-cell lymphoma stage II
     Dosage: 1Q3W
     Route: 042
     Dates: start: 20210831, end: 20210831
  4. DEXAMETHASONE [Suspect]
     Active Substance: DEXAMETHASONE
     Indication: Diffuse large B-cell lymphoma stage II
     Dosage: SINGLE
     Route: 048
     Dates: start: 20210831, end: 20210831
  5. DALTEPARIN [Suspect]
     Active Substance: DALTEPARIN
     Indication: Prophylaxis
     Dosage: 5000 UNITS, QD
     Route: 058
     Dates: start: 202107, end: 20210908
  6. EPCORITAMAB [Concomitant]
     Active Substance: EPCORITAMAB
     Indication: Diffuse large B-cell lymphoma stage II
     Dosage: 0.16 MILLIGRAM, SINGLE
     Route: 058
     Dates: start: 20210901, end: 20210901
  7. CHLORPHENIRAMINE MALEATE [Concomitant]
     Active Substance: CHLORPHENIRAMINE MALEATE
     Route: 042
     Dates: start: 20210908, end: 20210908
  8. ACETAMINOPHEN [Concomitant]
     Active Substance: ACETAMINOPHEN
     Dates: start: 20210908, end: 20210908
  9. ONDANSETRON [Concomitant]
     Active Substance: ONDANSETRON
     Dates: start: 20210901, end: 20210901
  10. ACYCLOVIR [Concomitant]
     Active Substance: ACYCLOVIR
     Dates: start: 202103
  11. FILGRASTIM [Concomitant]
     Active Substance: FILGRASTIM
     Dates: start: 202104
  12. FLUOXETINE [Concomitant]
     Active Substance: FLUOXETINE HYDROCHLORIDE
     Dates: start: 202103
  13. FOLIC ACID [Concomitant]
     Active Substance: FOLIC ACID
     Dates: start: 202104
  14. LANSOPRAZOLE [Concomitant]
     Active Substance: LANSOPRAZOLE
     Dates: start: 202104
  15. POSACONAZOLE [Concomitant]
     Active Substance: POSACONAZOLE
     Dates: start: 202107
  16. METOCLOPRAMIDE [Concomitant]
     Active Substance: METOCLOPRAMIDE
     Dates: start: 20211011
  17. DEXAMETHASONE PHOSPHATE [Concomitant]
     Active Substance: DEXAMETHASONE PHOSPHATE
     Dates: start: 20210902, end: 20210911
  18. DEXAMETHASONE [Concomitant]
     Active Substance: DEXAMETHASONE
     Indication: Prophylaxis
     Route: 042
     Dates: start: 20210908, end: 20210908
  19. DEXAMETHASONE [Concomitant]
     Active Substance: DEXAMETHASONE
     Indication: Prophylaxis
     Route: 048
     Dates: start: 20210909, end: 20210911
  20. DEXAMETHASONE [Suspect]
     Active Substance: DEXAMETHASONE
     Indication: Diffuse large B-cell lymphoma stage II
     Dosage: SINGLE
     Route: 048
     Dates: start: 20211008
  21. ACETAMINOPHEN [Concomitant]
     Active Substance: ACETAMINOPHEN
     Route: 048
     Dates: start: 20210831, end: 20210908
  22. DEXAMETHASONE [Suspect]
     Active Substance: DEXAMETHASONE
     Indication: Diffuse large B-cell lymphoma stage II
     Dosage: 16 MG AT 15: 20 HRS
     Route: 048
     Dates: start: 20210909, end: 20210911
  23. CARBOPLATIN [Suspect]
     Active Substance: CARBOPLATIN
  24. CARBOPLATIN [Suspect]
     Active Substance: CARBOPLATIN
     Indication: Diffuse large B-cell lymphoma stage II
     Route: 042
  25. CARBOPLATIN [Suspect]
     Active Substance: CARBOPLATIN
     Dosage: 750 MG, 1Q3W (EVERY 3WEEKS)
     Route: 042
     Dates: start: 20210901
  26. CYTARABINE [Suspect]
     Active Substance: CYTARABINE
     Indication: Diffuse large B-cell lymphoma stage II
     Dosage: 1Q2H
     Route: 042
     Dates: start: 20210901, end: 20210901
  27. CYTARABINE [Suspect]
     Active Substance: CYTARABINE
     Indication: Diffuse large B-cell lymphoma stage II
     Dosage: 1Q2H, 2000 MG/M2 EVERY 12 HOURS
     Route: 042
     Dates: start: 20210902
  28. CYTARABINE [Suspect]
     Active Substance: CYTARABINE
     Indication: Diffuse large B-cell lymphoma stage II
     Dosage: 9 MG/M2, BID (2000 MG/M2 EVERY 12 HOURS)
     Route: 042
     Dates: start: 20210902
  29. CYTARABINE [Suspect]
     Active Substance: CYTARABINE
     Indication: Diffuse large B-cell lymphoma stage II
     Dosage: 2000 MG/M2
     Route: 042
     Dates: start: 20210902
  30. DEXAMETHASONE [Suspect]
     Active Substance: DEXAMETHASONE
     Indication: Diffuse large B-cell lymphoma stage II
     Dosage: SINGLE
     Route: 048
     Dates: start: 20210908
  31. EPCORITAMAB [Concomitant]
     Active Substance: EPCORITAMAB
     Indication: Product used for unknown indication
  32. EPCORITAMAB [Concomitant]
     Active Substance: EPCORITAMAB
     Indication: Product used for unknown indication
     Dosage: INTERMEDIATE DOSE 0.8 MG, SINGLE
     Route: 058
     Dates: start: 20210901, end: 20210901
  33. DALTEPARIN [Suspect]
     Active Substance: DALTEPARIN
     Indication: Product used for unknown indication
     Route: 058
     Dates: start: 202107, end: 20210908
  34. DALTEPARIN [Suspect]
     Active Substance: DALTEPARIN
     Indication: Prophylaxis
     Dosage: 25 IU, QD (5000 IU, 1X/DAY)
     Route: 058
     Dates: start: 202107, end: 20210908
  35. RITUXIMAB [Suspect]
     Active Substance: RITUXIMAB
     Indication: Product used for unknown indication
     Dates: start: 201912, end: 202004
  36. RITUXIMAB [Suspect]
     Active Substance: RITUXIMAB
     Indication: Product used for unknown indication
     Dates: start: 202008, end: 202009
  37. RITUXIMAB [Suspect]
     Active Substance: RITUXIMAB
     Indication: Product used for unknown indication
     Dosage: 9 MG/M2, Q3W (375 MG/M2, EVERY 3 WEEKS)
     Route: 042
     Dates: start: 20210831
  38. RITUXIMAB [Suspect]
     Active Substance: RITUXIMAB
     Indication: Product used for unknown indication
     Dosage: 1Q3W
     Route: 042
     Dates: start: 20210831
  39. ACETAMINOPHEN [Concomitant]
     Active Substance: ACETAMINOPHEN
     Route: 048
     Dates: start: 20210901
  40. ACETAMINOPHEN [Concomitant]
     Active Substance: ACETAMINOPHEN
     Route: 048
     Dates: start: 20210908, end: 20210922
  41. ACETAMINOPHEN [Concomitant]
     Active Substance: ACETAMINOPHEN
     Route: 048
     Dates: start: 20210908
  42. EPCORITAMAB [Concomitant]
     Active Substance: EPCORITAMAB
     Indication: Diffuse large B-cell lymphoma stage II
     Dosage: 0.8 MILLIGRAM, SINGLE
     Route: 058
     Dates: start: 20210908, end: 20210908
  43. DEXAMETHASONE [Suspect]
     Active Substance: DEXAMETHASONE
     Indication: Diffuse large B-cell lymphoma stage II
     Dosage: SINGLE
     Route: 048
     Dates: start: 20210901, end: 20210903
  44. DEXAMETHASONE [Suspect]
     Active Substance: DEXAMETHASONE
     Indication: Diffuse large B-cell lymphoma stage II
     Dosage: SINGLE
     Dates: start: 20210908, end: 20210908
  45. DEXAMETHASONE [Suspect]
     Active Substance: DEXAMETHASONE
     Indication: Diffuse large B-cell lymphoma stage II
     Dosage: SINGLE
     Route: 048
     Dates: start: 20210922, end: 20210922
  46. DEXAMETHASONE [Suspect]
     Active Substance: DEXAMETHASONE
     Indication: Diffuse large B-cell lymphoma stage II
     Dosage: SINGLE
     Route: 048
     Dates: start: 20210923, end: 20210925
  47. EPCORITAMAB [Concomitant]
     Active Substance: EPCORITAMAB
     Indication: Product used for unknown indication
     Dosage: 0.8 MG, SINGLE (FULL DOSE)
     Route: 058
     Dates: start: 20210922
  48. ACETAMINOPHEN [Concomitant]
     Active Substance: ACETAMINOPHEN
     Dates: start: 20210908, end: 20210922
  49. CYTARABINE [Suspect]
     Active Substance: CYTARABINE
     Indication: Diffuse large B-cell lymphoma stage II
     Dosage: 1Q2H
     Route: 042
     Dates: start: 20211006, end: 20211007
  50. CARBOPLATIN [Suspect]
     Active Substance: CARBOPLATIN
     Indication: Diffuse large B-cell lymphoma stage II
     Dosage: 5 AUC
     Route: 042
     Dates: start: 20211006
  51. RITUXIMAB [Suspect]
     Active Substance: RITUXIMAB
     Indication: Diffuse large B-cell lymphoma stage II
     Dosage: 1Q3W
     Route: 042
     Dates: start: 20211006
  52. DEXAMETHASONE [Suspect]
     Active Substance: DEXAMETHASONE
     Indication: Diffuse large B-cell lymphoma stage II
     Route: 048
     Dates: start: 20211009
  53. EPCORITAMAB [Concomitant]
     Active Substance: EPCORITAMAB
     Indication: Diffuse large B-cell lymphoma stage II
     Dosage: C2D15
     Route: 058
     Dates: start: 20211013
  54. ACETAMINOPHEN [Concomitant]
     Active Substance: ACETAMINOPHEN
     Indication: Premedication
     Dates: start: 20210901
  55. CYTARABINE [Suspect]
     Active Substance: CYTARABINE
     Indication: Diffuse large B-cell lymphoma stage II
     Dosage: 2000 MG/M2, EVERY 12 HOURS
     Route: 042
     Dates: start: 20210901
  56. CHLORPHENIRAMINE MALEATE [Concomitant]
     Active Substance: CHLORPHENIRAMINE MALEATE
     Route: 042
     Dates: start: 20210831, end: 20210831
  57. CHLORPHENIRAMINE MALEATE [Concomitant]
     Active Substance: CHLORPHENIRAMINE MALEATE
     Route: 042
     Dates: start: 20210908, end: 20210922
  58. DEXAMETHASONE [Suspect]
     Active Substance: DEXAMETHASONE
     Indication: Diffuse large B-cell lymphoma stage II
     Route: 048
     Dates: start: 20220914, end: 20220917
  59. CYTARABINE [Suspect]
     Active Substance: CYTARABINE
     Indication: Product used for unknown indication
     Dosage: 1Q2H
     Route: 042
     Dates: start: 20210902
  60. DEXAMETHASONE [Suspect]
     Active Substance: DEXAMETHASONE
     Indication: Diffuse large B-cell lymphoma stage II
     Dosage: SINGLE
     Route: 048
     Dates: start: 20210902, end: 20210903
  61. CYTARABINE [Suspect]
     Active Substance: CYTARABINE
     Indication: Product used for unknown indication
     Dosage: 16 MG, SINGLE
     Route: 042
     Dates: start: 20210922, end: 20210922
  62. CHLORPHENIRAMINE MALEATE [Concomitant]
     Active Substance: CHLORPHENIRAMINE MALEATE
     Route: 042
     Dates: start: 20210901, end: 20210901
  63. CYTARABINE [Suspect]
     Active Substance: CYTARABINE
     Indication: Diffuse large B-cell lymphoma
     Route: 042
  64. RITUXIMAB [Suspect]
     Active Substance: RITUXIMAB
     Indication: Diffuse large B-cell lymphoma

REACTIONS (6)
  - Product use issue [Unknown]
  - Thrombocytopenia [Recovered/Resolved]
  - Cellulitis [Recovered/Resolved]
  - Febrile neutropenia [Recovered/Resolved]
  - Neutropenic infection [Recovered/Resolved]
  - Disease progression [Unknown]

NARRATIVE: CASE EVENT DATE: 20210910
